FAERS Safety Report 4396458-7 (Version None)
Quarter: 2004Q2

REPORT INFORMATION
  Report Type: 
  Country: None (occurrence: None)
  Receive Date: 20040621
  Receipt Date: 20021018
  Transmission Date: 20050107
  Serious: Yes (Death, Other)
  Sender: FDA-Public Use
  Company Number: USA-2002-0002869

PATIENT
  Age: 20 Year
  Sex: Male
  Weight: 67.1 kg

DRUGS (8)
  1. OXYCONTIN [Suspect]
     Dosage: ORAL
     Route: 048
  2. ALPRAZOLAM [Suspect]
  3. TEMAZEPAM [Suspect]
  4. CANABANOIDS (CANNABIS) [Suspect]
  5. DIAZEPAM [Suspect]
  6. NICOTINE [Suspect]
  7. CAFFEINE (CAFFEINE) [Suspect]
  8. ACETAMINOPHEN [Suspect]

REACTIONS (2)
  - ACCIDENTAL OVERDOSE [None]
  - DRUG ABUSER [None]
